FAERS Safety Report 5406074-3 (Version None)
Quarter: 2007Q3

REPORT INFORMATION
  Report Type: 
  Country: None (occurrence: None)
  Receive Date: 20070806
  Receipt Date: 20070801
  Transmission Date: 20080115
  Serious: Yes (Other)
  Sender: FDA-Public Use
  Company Number: D0054062A

PATIENT

DRUGS (1)
  1. QUILONUM RETARD [Suspect]
     Dosage: 450MG UNKNOWN
     Route: 048

REACTIONS (1)
  - THROMBOCYTOPENIA [None]
